FAERS Safety Report 5968327-X (Version None)
Quarter: 2008Q4

REPORT INFORMATION
  Report Type: 
  Country: None (occurrence: None)
  Receive Date: 20081121
  Receipt Date: 20081121
  Transmission Date: 20090506
  Serious: No
  Sender: FDA-Public Use
  Company Number: None

PATIENT
  Age: 28 Year
  Sex: Female

DRUGS (2)
  1. TOBRAMYCIN [Suspect]
     Indication: SEPSIS
     Dosage: IV
     Route: 042
     Dates: start: 20081101, end: 20081108
  2. DORIPENEM [Suspect]
     Indication: SEPSIS
     Dosage: IV
     Route: 042
     Dates: start: 20081101, end: 20081107

REACTIONS (1)
  - TOXIC EPIDERMAL NECROLYSIS [None]
